FAERS Safety Report 6535650-X (Version None)
Quarter: 2010Q1

REPORT INFORMATION
  Report Type: 
  Country: None (occurrence: None)
  Receive Date: 20100113
  Receipt Date: 20100111
  Transmission Date: 20100710
  Serious: Yes (Death, Hospitalization, Other)
  Sender: FDA-Public Use
  Company Number: PHEH2007US03601

PATIENT
  Sex: Female

DRUGS (12)
  1. ZOMETA [Suspect]
     Indication: BREAST CANCER
     Dosage: UNK
  2. TAMOXIFEN CITRATE [Concomitant]
  3. RADIATION THERAPY [Concomitant]
  4. NAVELBINE [Concomitant]
  5. ALOXI [Concomitant]
  6. DECADRON                                /CAN/ [Concomitant]
  7. PROCRIT                            /00909301/ [Concomitant]
  8. DOXIL [Concomitant]
  9. RED BLOOD CELLS [Concomitant]
  10. MORPHINE [Concomitant]
  11. CHEMOTHERAPEUTICS NOS [Concomitant]
  12. LETROZOLE [Concomitant]

REACTIONS (53)
  - ANAEMIA [None]
  - ANXIETY [None]
  - ARTHRALGIA [None]
  - ARTHROPATHY [None]
  - BONE DENSITY DECREASED [None]
  - BONE DISORDER [None]
  - BONE LESION [None]
  - BONE NEOPLASM MALIGNANT [None]
  - BRAIN CANCER METASTATIC [None]
  - DEATH [None]
  - DECREASED APPETITE [None]
  - DECREASED INTEREST [None]
  - DEFORMITY [None]
  - DEHYDRATION [None]
  - DEPRESSED MOOD [None]
  - DISCOMFORT [None]
  - EMOTIONAL DISTRESS [None]
  - FAECES DISCOLOURED [None]
  - FATIGUE [None]
  - GASTROOESOPHAGEAL REFLUX DISEASE [None]
  - GENERAL PHYSICAL HEALTH DETERIORATION [None]
  - HAND-FOOT-AND-MOUTH DISEASE [None]
  - HEPATIC CANCER METASTATIC [None]
  - HIP FRACTURE [None]
  - HYPERTENSION [None]
  - HYPOAESTHESIA [None]
  - HYPOAESTHESIA ORAL [None]
  - HYPOPHAGIA [None]
  - INFECTION [None]
  - LIBIDO DECREASED [None]
  - MALAISE [None]
  - MASTECTOMY [None]
  - MELAENA [None]
  - METASTASES TO BONE [None]
  - METASTASES TO CENTRAL NERVOUS SYSTEM [None]
  - MOUTH ULCERATION [None]
  - NAUSEA [None]
  - OSTEOARTHRITIS [None]
  - OSTEONECROSIS [None]
  - OSTEOPOROSIS [None]
  - PAIN [None]
  - PARAESTHESIA [None]
  - PLEURAL EFFUSION [None]
  - PNEUMONIA [None]
  - POLYARTHRITIS [None]
  - POLYP [None]
  - RESPIRATORY DISTRESS [None]
  - SCOLIOSIS [None]
  - SEBORRHOEIC KERATOSIS [None]
  - SQUAMOUS CELL CARCINOMA [None]
  - TOOTH EXTRACTION [None]
  - VISION BLURRED [None]
  - WEIGHT DECREASED [None]
